FAERS Safety Report 9908211 (Version 1)
Quarter: 2014Q1

REPORT INFORMATION
  Report Type: Spontaneous
  Country: US (occurrence: None)
  Receive Date: 20140211
  Receipt Date: 20140211
  Transmission Date: 20141002
  Serious: Yes (Other)
  Sender: FDA-Public Use
  Company Number: SYM-2014-17102

PATIENT
  Sex: 0

DRUGS (9)
  1. FLUOROURACIL [Suspect]
     Indication: ADENOCARCINOMA PANCREAS
     Dosage: 2400 MG/M2 EVERY OTHER WEEK
  2. OXALIPLATIN (OXALIPLATIN) (OXALIPLATIN) [Suspect]
     Dosage: 85MG/M2 EVERY OTHER WEEK
  3. IRINOTECAN (IRINOTECAN) (IRINOTECAN) [Suspect]
     Indication: ADENOCARCINOMA PANCREAS
     Dosage: 180MG/M2, EVERY OTHER WEEK
  4. LEUCOVORIN (FOLINIC ACID) (FOLINIC ACID) [Suspect]
     Indication: ADENOCARCINOMA PANCREAS
  5. SEROTONIN ANTAGONISTS (SEROTONIN ANTAGONISTS) [Concomitant]
  6. DEXAMETHASONE (DEXAMETHASONE) (DEXAMETHASONE) [Concomitant]
  7. PEGFILGRASTIM (PEGFILGRASTIM) (PEGFILGRASTIM) [Concomitant]
  8. DEXTROSE (GLUCOSE) (GLUCOSE) [Concomitant]
  9. NORMAL SALINE (SODIUM CHLORIDE) (SODIUM CHORIDE) [Concomitant]

REACTIONS (1)
  - Neuropathy peripheral [None]
